FAERS Safety Report 8512090-5 (Version None)
Quarter: 2012Q3

REPORT INFORMATION
  Report Type: 
  Country: None (occurrence: None)
  Receive Date: 20120716
  Receipt Date: 20120711
  Transmission Date: 20120928
  Serious: Yes (Other)
  Sender: FDA-Public Use
  Company Number: PHHY2012BR051774

PATIENT
  Sex: Female

DRUGS (13)
  1. CLONIDINE HYDROCHLORIDE [Concomitant]
     Indication: ARTHROPATHY
  2. CLONIDINE HYDROCHLORIDE [Concomitant]
     Indication: ARTHRALGIA
     Dosage: 10 MG, DAILY
     Route: 048
  3. OXYGEN [Concomitant]
     Indication: OXYGEN SATURATION DECREASED
     Dosage: 2 DF(30MG) DAILY
     Route: 048
  4. MYTEDOM [Concomitant]
     Indication: ARTHRALGIA
     Dosage: 5 MG, UNK
     Route: 048
  5. LOSARTAN POTASSIUM [Concomitant]
     Indication: HYPERTENSION
     Dosage: 2 DF (50MG) A DAY
     Route: 048
  6. FUROSEMIDE [Concomitant]
     Indication: HYPERTENSION
     Dosage: 40 MG, DAILY
     Route: 048
  7. CYMBALTA [Concomitant]
     Indication: PAIN
     Dosage: 2 DF (60MG) DAILY
     Route: 048
  8. SPIRONOLACTONE [Concomitant]
     Dosage: 25 MG, DAILY
     Route: 048
  9. OMEGA VITAMIN A TO Z [Concomitant]
     Dosage: 1 DF, DAILY
     Route: 048
  10. EXELON [Suspect]
     Indication: MEMORY IMPAIRMENT
     Dosage: 4.6 MG, 1 PATCH DAILY
     Route: 062
  11. EXELON [Suspect]
     Dosage: 9.5 MG, UNK
     Route: 062
  12. CLONIDINE HYDROCHLORIDE [Concomitant]
     Indication: BLOOD PRESSURE
  13. MALEATATO OF MIDAZOLA [Concomitant]
     Indication: SLEEP DISORDER
     Dosage: 2 DF (15MG) DAILY
     Route: 048

REACTIONS (3)
  - HYPERTENSION [None]
  - DEMENTIA ALZHEIMER'S TYPE [None]
  - DRUG INEFFECTIVE [None]
